FAERS Safety Report 5497836-5 (Version None)
Quarter: 2007Q4

REPORT INFORMATION
  Report Type: 
  Country: None (occurrence: None)
  Receive Date: 20071025
  Receipt Date: 20070307
  Transmission Date: 20080405
  Serious: No
  Sender: FDA-Public Use
  Company Number: A0642209A

PATIENT
  Age: 50 Year
  Sex: Female

DRUGS (5)
  1. ADVAIR DISKUS 100/50 [Suspect]
     Indication: CHRONIC OBSTRUCTIVE PULMONARY DISEASE
     Route: 055
     Dates: start: 20070306
  2. BENICAR [Concomitant]
  3. ANETOL [Concomitant]
  4. DEXTROMETHORPHAN HYDROBROMIDE [Concomitant]
  5. UNKNOWN MEDICATION [Concomitant]

REACTIONS (3)
  - HEADACHE [None]
  - OEDEMA PERIPHERAL [None]
  - URTICARIA [None]
